FAERS Safety Report 5004396-1 (Version None)
Quarter: 2006Q2

REPORT INFORMATION
  Report Type: 
  Country: None (occurrence: None)
  Receive Date: 20060511
  Receipt Date: 20060502
  Transmission Date: 20061013
  Serious: Yes (Death, Hospitalization)
  Sender: FDA-Public Use
  Company Number: 163-20785-06020218

PATIENT
  Age: 63 Year
  Sex: Female

DRUGS (13)
  1. THALOMID [Suspect]
     Indication: TRANSITIONAL CELL CANCER OF RENAL PELVIS AND URETER METASTATIC
     Dosage: 200 MG, DAILY, ORAL
     Route: 048
     Dates: start: 20050825, end: 20060102
  2. ATACAND [Concomitant]
  3. CLONIDINE [Concomitant]
  4. PLAVIX [Concomitant]
  5. GLUCOTROL [Concomitant]
  6. LANTUS [Concomitant]
  7. CALCIUM GLUCONATE [Concomitant]
  8. PHOSLO [Concomitant]
  9. SURFAK (DOCUSATE CALCIUM) [Concomitant]
  10. PEPCID [Concomitant]
  11. IRON [Concomitant]
  12. ASCORBIC ACID [Concomitant]
  13. MORPHINE SULFATE [Concomitant]

REACTIONS (11)
  - BACK PAIN [None]
  - BACTERIAL INFECTION [None]
  - CHRONIC OBSTRUCTIVE PULMONARY DISEASE [None]
  - CONDITION AGGRAVATED [None]
  - CONSTIPATION [None]
  - DEHYDRATION [None]
  - DISEASE PROGRESSION [None]
  - FAECALOMA [None]
  - METASTASES TO BONE [None]
  - UNEVALUABLE EVENT [None]
  - URINARY TRACT INFECTION [None]
